FAERS Safety Report 10498163 (Version 1)
Quarter: 2014Q4

REPORT INFORMATION
  Report Type: Spontaneous
  Country: US (occurrence: None)
  Receive Date: 20141002
  Receipt Date: 20141002
  Transmission Date: 20150528
  Serious: Yes (Other)
  Sender: FDA-Public Use
  Company Number: INT_00421_2014

PATIENT
  Sex: Female

DRUGS (4)
  1. CYCLOPHOSPHAMIDE. [Suspect]
     Active Substance: CYCLOPHOSPHAMIDE
     Indication: BREAST CANCER
     Dosage: OVER 30-60 MIN, ON DAY 1 EVERY 2 WEEKS FOR UP TO 4 CYCLES
     Route: 042
  2. PACLITAXEL (HQ SPECIALTY) [Suspect]
     Active Substance: PACLITAXEL
     Indication: BREAST CANCER
     Dosage: OVER 1 HOUR, ON DAY 1 WEEKLY FOR UP TO 12 DOSES
     Route: 042
  3. VORINOSTAT [Concomitant]
     Active Substance: VORINOSTAT
     Indication: BREAST CANCER
     Dosage: ON DAYS 1-3 OF EACH WEEKLY PACLITAXEL DOSE
     Route: 048
  4. DOXORUBICIN [Suspect]
     Active Substance: DOXORUBICIN
     Indication: BREAST CANCER
     Dosage: SLOW INTRAVENOUS PUSH OVER 10-15 MIN, ON DAY 1 EVERY 2 WEEKS FOR UP TO 4 CYCLES
     Route: 042

REACTIONS (1)
  - Electrocardiogram QT prolonged [None]
